FAERS Safety Report 9313002 (Version 1)
Quarter: 2013Q2

REPORT INFORMATION
  Report Type: Spontaneous
  Country: US (occurrence: US)
  Receive Date: 20130528
  Receipt Date: 20130528
  Transmission Date: 20140414
  Serious: No
  Sender: FDA-Public Use
  Company Number: US-ABBOTT-13P-163-1075582-00

PATIENT
  Sex: Male
  Weight: 104.42 kg

DRUGS (7)
  1. ANDROGEL [Suspect]
     Indication: BLOOD TESTOSTERONE DECREASED
     Dosage: 2 PUMPS
     Route: 061
     Dates: start: 20130325
  2. PREVACID CAPSULES [Suspect]
     Indication: GASTROOESOPHAGEAL REFLUX DISEASE
  3. LOTREL [Concomitant]
     Indication: HYPERTENSION
  4. LIPITOR [Concomitant]
     Indication: BLOOD CHOLESTEROL INCREASED
  5. ALLEGRA [Concomitant]
     Indication: SEASONAL ALLERGY
  6. SYMBICORT [Concomitant]
     Indication: SEASONAL ALLERGY
  7. NASOCORT [Concomitant]
     Indication: SEASONAL ALLERGY

REACTIONS (2)
  - Asthenia [Not Recovered/Not Resolved]
  - Drug ineffective [Unknown]
